FAERS Safety Report 10698946 (Version 2)
Quarter: 2015Q1

REPORT INFORMATION
  Report Type: Spontaneous
  Country: HU (occurrence: HU)
  Receive Date: 20150108
  Receipt Date: 20150108
  Transmission Date: 20150721
  Serious: Yes (Other)
  Sender: FDA-Public Use
  Company Number: HU-PFIZER INC-2014297956

PATIENT
  Age: 60 Year
  Sex: Male

DRUGS (1)
  1. CARDURA XL [Suspect]
     Active Substance: DOXAZOSIN MESYLATE
     Indication: HYPERTENSION
     Dosage: 4 MG, 1X/DAY,  HE TOOK IT FOR 3 WEEKS
     Route: 048
     Dates: start: 20140915

REACTIONS (6)
  - Diabetes mellitus [Unknown]
  - Therapeutic response unexpected [Unknown]
  - Liver disorder [Unknown]
  - Pre-existing condition improved [Unknown]
  - Hypotonia [Unknown]
  - Eye disorder [Unknown]
